FAERS Safety Report 6727631-8 (Version None)
Quarter: 2010Q2

REPORT INFORMATION
  Report Type: 
  Country: None (occurrence: None)
  Receive Date: 20100517
  Receipt Date: 20100506
  Transmission Date: 20101027
  Serious: Yes (Hospitalization)
  Sender: FDA-Public Use
  Company Number: FR-ASTRAZENECA-2009CG00738

PATIENT
  Age: 18886 Day
  Sex: Female
  Weight: 78 kg

DRUGS (14)
  1. NEXIUM [Suspect]
     Route: 048
     Dates: start: 20090312, end: 20090318
  2. MOPRAL [Concomitant]
     Route: 048
  3. MINIRIN [Concomitant]
     Indication: DIABETES INSIPIDUS
     Route: 045
  4. LEVOTHYROXINE SODIUM [Concomitant]
     Indication: HYPOTHYROIDISM
     Route: 048
     Dates: start: 20080401
  5. LOVENOX [Concomitant]
     Route: 058
  6. ACUPAN [Concomitant]
     Route: 048
  7. TARDYFERON [Concomitant]
     Route: 048
  8. DUPHALAC [Concomitant]
     Route: 048
  9. DAFALGAN [Concomitant]
     Route: 048
  10. CONTRAMAL [Concomitant]
  11. SEVREDOL [Concomitant]
     Route: 048
  12. GAVISCON [Concomitant]
     Route: 048
  13. CORTANCYL [Concomitant]
     Route: 048
  14. DIFFU K [Concomitant]
     Route: 048

REACTIONS (1)
  - NEUTROPENIA [None]
